FAERS Safety Report 24763995 (Version 2)
Quarter: 2024Q4

REPORT INFORMATION
  Report Type: Spontaneous
  Country: US (occurrence: US)
  Receive Date: 20241223
  Receipt Date: 20241223
  Transmission Date: 20250115
  Serious: No
  Sender: NOVARTIS
  Company Number: US-002147023-NVSC2024US237803

PATIENT
  Sex: Female
  Weight: 77 kg

DRUGS (2)
  1. FABHALTA [Suspect]
     Active Substance: IPTACOPAN HYDROCHLORIDE
     Indication: Blood immunoglobulin A
     Dosage: 200 MG, BID
     Route: 048
     Dates: start: 20241129
  2. FABHALTA [Suspect]
     Active Substance: IPTACOPAN HYDROCHLORIDE
     Indication: Nephropathy

REACTIONS (3)
  - Dyspepsia [Not Recovered/Not Resolved]
  - Off label use [Unknown]
  - Illness [Unknown]
